FAERS Safety Report 9696023 (Version 1)
Quarter: 2013Q4

REPORT INFORMATION
  Report Type: Spontaneous
  Country: US (occurrence: None)
  Receive Date: 20131115
  Receipt Date: 20131115
  Transmission Date: 20140711
  Serious: Yes (Hospitalization, Other)
  Sender: FDA-Public Use
  Company Number: KAD201310-001343

PATIENT
  Age: 49 Year
  Sex: Male

DRUGS (2)
  1. RIBAVIRIN [Suspect]
     Indication: CHRONIC HEPATITIS C
     Dosage: 400 MG, DAILY, ORAL
     Route: 048
  2. PEGYLATED INTERFERON ALFA-2A (PEGYLATED INTERFERON ALFA-2A) [Suspect]
     Indication: CHRONIC HEPATITIS C
     Dosage: 135 MCG, WEEKLY, SUBCUTANEOUS
     Route: 058

REACTIONS (10)
  - Therapeutic response unexpected [None]
  - Anaemia [None]
  - Fatigue [None]
  - Irritability [None]
  - Nausea [None]
  - Weight decreased [None]
  - Myalgia [None]
  - Disturbance in attention [None]
  - Arteriovenous fistula site infection [None]
  - Renal failure acute [None]
